FAERS Safety Report 14246483 (Version 1)
Quarter: 2017Q4

REPORT INFORMATION
  Report Type: Spontaneous
  Country: ES (occurrence: ES)
  Receive Date: 20171204
  Receipt Date: 20171204
  Transmission Date: 20180321
  Serious: Yes (Other)
  Sender: FDA-Public Use
  Company Number: ES-ROCHE-2031016

PATIENT
  Age: 98 Year
  Sex: Male

DRUGS (1)
  1. VISMODEGIB. [Suspect]
     Active Substance: VISMODEGIB
     Indication: BASAL CELL CARCINOMA
     Route: 065
     Dates: start: 201612, end: 201707

REACTIONS (3)
  - Alopecia [Unknown]
  - Subcutaneous abscess [Unknown]
  - Anaemia [Unknown]

NARRATIVE: CASE EVENT DATE: 201701
